FAERS Safety Report 4435337-3 (Version None)
Quarter: 2004Q3

REPORT INFORMATION
  Report Type: 
  Country: None (occurrence: None)
  Receive Date: 20040827
  Receipt Date: 20040820
  Transmission Date: 20050211
  Serious: Yes (Hospitalization)
  Sender: FDA-Public Use
  Company Number: US-JNJFOC-20040807319

PATIENT
  Age: 46 Year
  Sex: Female

DRUGS (6)
  1. DURAGESIC [Suspect]
     Route: 062
     Dates: start: 20020101
  2. PREDNISONE [Concomitant]
     Indication: DRUG USE FOR UNKNOWN INDICATION
     Route: 049
  3. VICODIN ES [Concomitant]
     Route: 049
  4. VICODIN ES [Concomitant]
     Indication: PAIN
     Dosage: 7.5/500 MG 2 TO 6 TABLETS DAILY PRN
     Route: 049
  5. NEURONTIN [Concomitant]
     Indication: PAIN
     Route: 049
  6. ZANAFLEX [Concomitant]
     Route: 049

REACTIONS (2)
  - COMA [None]
  - DRUG WITHDRAWAL SYNDROME [None]
